FAERS Safety Report 4696640-5 (Version None)
Quarter: 2005Q2

REPORT INFORMATION
  Report Type: 
  Country: None (occurrence: None)
  Receive Date: 20050616
  Receipt Date: 20050411
  Transmission Date: 20051028
  Serious: No
  Sender: FDA-Public Use
  Company Number: BDI-007115

PATIENT
  Age: 71 Year
  Sex: Male

DRUGS (1)
  1. MULTIHANCE [Suspect]
     Indication: NUCLEAR MAGNETIC RESONANCE IMAGING
     Dosage: 20 ML ONCE
     Route: 042
     Dates: start: 20050405, end: 20050405

REACTIONS (4)
  - COUGH [None]
  - LACRIMATION INCREASED [None]
  - PRURITUS [None]
  - SNEEZING [None]
